FAERS Safety Report 5750409-9 (Version None)
Quarter: 2008Q2

REPORT INFORMATION
  Report Type: 
  Country: None (occurrence: None)
  Receive Date: 20080523
  Receipt Date: 20080523
  Transmission Date: 20081010
  Serious: Yes (Hospitalization)
  Sender: FDA-Public Use
  Company Number: None

PATIENT
  Age: 40 Year
  Sex: Female
  Weight: 136.9863 kg

DRUGS (8)
  1. SOLU-MEDROL [Suspect]
     Indication: ASTHMA
     Dosage: 60 MG EVERY 8 HOURS IV
     Route: 042
     Dates: start: 20080514, end: 20080515
  2. PREDNISONE [Suspect]
     Dosage: 10 MG DAILY PO
     Route: 048
     Dates: start: 20080508, end: 20080514
  3. SYNTHROID [Concomitant]
  4. CELEXA [Concomitant]
  5. SINGULAIR [Concomitant]
  6. ADVAIR DISKUS 100/50 [Concomitant]
  7. XOPENEX [Concomitant]
  8. PULMICORT RESPULES [Concomitant]

REACTIONS (7)
  - AGITATION [None]
  - ASTHMA [None]
  - CONDITION AGGRAVATED [None]
  - HALLUCINATION, TACTILE [None]
  - HALLUCINATIONS, MIXED [None]
  - PARANOIA [None]
  - PSYCHOTIC DISORDER [None]
